FAERS Safety Report 11004152 (Version 1)
Quarter: 2015Q2

REPORT INFORMATION
  Report Type: Spontaneous
  Country: PT (occurrence: None)
  Receive Date: 20150407
  Receipt Date: 20150407
  Transmission Date: 20150821
  Serious: Yes (Other)
  Sender: FDA-Public Use
  Company Number: FK201501589

PATIENT
  Age: 71 Year
  Sex: Male

DRUGS (1)
  1. FLOUROURACIL [Suspect]
     Active Substance: FLUOROURACIL
     Indication: ADENOCARCINOMA

REACTIONS (4)
  - Cat scratch disease [None]
  - Lymph node tuberculosis [None]
  - Tuberculosis [None]
  - Pleural disorder [None]
